FAERS Safety Report 5361070-X (Version None)
Quarter: 2007Q2

REPORT INFORMATION
  Report Type: 
  Country: None (occurrence: None)
  Receive Date: 20070618
  Receipt Date: 20070607
  Transmission Date: 20071010
  Serious: Yes (Hospitalization)
  Sender: FDA-Public Use
  Company Number: GB-PFIZER INC-2007048122

PATIENT
  Age: 81 Year
  Sex: Male

DRUGS (4)
  1. FLUCONAZOLE [Suspect]
     Indication: OESOPHAGITIS
     Route: 048
     Dates: start: 20061026, end: 20061120
  2. SIMVASTATIN [Suspect]
     Indication: PROPHYLAXIS
     Dosage: DAILY DOSE:40MG
     Route: 048
  3. OCTREOTIDE ACETATE [Concomitant]
     Indication: VIPOMA
  4. PARACETAMOL [Concomitant]
     Indication: PAIN

REACTIONS (2)
  - RENAL IMPAIRMENT [None]
  - RHABDOMYOLYSIS [None]
